FAERS Safety Report 8094272-2 (Version None)
Quarter: 2012Q1

REPORT INFORMATION
  Report Type: 
  Country: None (occurrence: None)
  Receive Date: 20120130
  Receipt Date: 20120123
  Transmission Date: 20120608
  Serious: Yes (Hospitalization, Disabling)
  Sender: FDA-Public Use
  Company Number: CA-SHIRE-ALL1-2012-00412

PATIENT
  Age: 11 Year
  Sex: Male
  Weight: 33 kg

DRUGS (2)
  1. VYVANSE [Suspect]
     Indication: PRODUCT USED FOR UNKNOWN INDICATION
     Dosage: 20 MG, 1X/DAY:QD
     Route: 048
  2. VYVANSE [Suspect]
     Dosage: 30 MG, 1X/DAY:QD
     Route: 048

REACTIONS (9)
  - TOURETTE'S DISORDER [None]
  - BLEPHAROSPASM [None]
  - HALLUCINATIONS, MIXED [None]
  - TIC [None]
  - CONDITION AGGRAVATED [None]
  - AGGRESSION [None]
  - DECREASED APPETITE [None]
  - ATTENTION DEFICIT/HYPERACTIVITY DISORDER [None]
  - DYSKINESIA [None]
